FAERS Safety Report 4374295-7 (Version None)
Quarter: 2004Q2

REPORT INFORMATION
  Report Type: 
  Country: None (occurrence: None)
  Receive Date: 20040608
  Receipt Date: 20040608
  Transmission Date: 20050107
  Serious: Yes (Hospitalization, Disabling)
  Sender: FDA-Public Use
  Company Number: None

PATIENT
  Sex: Male
  Weight: 105.2345 kg

DRUGS (5)
  1. XELODA [Suspect]
     Indication: GLIOBLASTOMA MULTIFORME
     Dosage: 2000 BID ORAL
     Route: 048
     Dates: start: 20031103, end: 20040520
  2. XELODA [Suspect]
     Indication: GLIOBLASTOMA MULTIFORME
     Dosage: 150 MG BID ORAL
     Route: 048
  3. DILANTIN [Concomitant]
  4. KEPPRA [Concomitant]
  5. DECADRON [Concomitant]

REACTIONS (6)
  - ASTHENIA [None]
  - BEDRIDDEN [None]
  - CONFUSIONAL STATE [None]
  - DIFFICULTY IN WALKING [None]
  - MOBILITY DECREASED [None]
  - SPEECH DISORDER [None]
